FAERS Safety Report 5919635-X (Version None)
Quarter: 2008Q4

REPORT INFORMATION
  Report Type: 
  Country: None (occurrence: None)
  Receive Date: 20081015
  Receipt Date: 20081010
  Transmission Date: 20090506
  Serious: Yes (Hospitalization)
  Sender: FDA-Public Use
  Company Number: US-KINGPHARMUSA00001-K200801182

PATIENT

DRUGS (2)
  1. ALTACE [Suspect]
  2. MYOCRISIN [Suspect]
     Dosage: 10 MG, UNK

REACTIONS (7)
  - BURNING SENSATION [None]
  - DRUG INTERACTION [None]
  - HYPOTENSION [None]
  - MALAISE [None]
  - NAUSEA [None]
  - RASH [None]
  - SYNCOPE [None]
